FAERS Safety Report 15163924 (Version 1)
Quarter: 2018Q3

REPORT INFORMATION
  Report Type: Report from Study
  Country: ES (occurrence: ES)
  Receive Date: 20180719
  Receipt Date: 20180719
  Transmission Date: 20181010
  Serious: Yes (Hospitalization)
  Sender: FDA-Public Use
  Company Number: ES-TEVA-2018-ES-928607

PATIENT
  Age: 54 Year
  Sex: Female

DRUGS (1)
  1. DICLOFENACO 50 MG COMPRESSED [Suspect]
     Active Substance: DICLOFENAC
     Dosage: COMPRESSED
     Route: 065
     Dates: start: 20150713, end: 20150713

REACTIONS (1)
  - Anaphylactic shock [Recovered/Resolved]

NARRATIVE: CASE EVENT DATE: 20150713
